FAERS Safety Report 4595641-5 (Version None)
Quarter: 2005Q1

REPORT INFORMATION
  Report Type: 
  Country: None (occurrence: None)
  Receive Date: 20050224
  Receipt Date: 20050210
  Transmission Date: 20050727
  Serious: Yes (Death, Hospitalization)
  Sender: FDA-Public Use
  Company Number: 6012866

PATIENT
  Age: 82 Year
  Sex: Female

DRUGS (7)
  1. CONGESCOR (BISOPROLOL) [Suspect]
     Indication: ATRIAL FIBRILLATION
     Dosage: 1,25 MG ORAL
     Route: 048
  2. CONGESCOR (BISOPROLOL) [Suspect]
     Indication: CARDIAC FAILURE
     Dosage: 1,25 MG ORAL
     Route: 048
  3. CONGESCOR (BISOPROLOL) [Suspect]
     Indication: HYPERTHYROIDISM
     Dosage: 1,25 MG ORAL
     Route: 048
  4. FUROSEMIDE [Concomitant]
  5. WARFARIN SODIUM [Concomitant]
  6. METHIMAZOLE [Concomitant]
  7. PERIINDOPRIL (PERINDOPRIL) [Concomitant]

REACTIONS (5)
  - DEHYDRATION [None]
  - ERYTHEMA MULTIFORME [None]
  - RENAL FAILURE ACUTE [None]
  - TOXIC SKIN ERUPTION [None]
  - URTICARIA [None]
